FAERS Safety Report 7586725-8 (Version None)
Quarter: 2011Q3

REPORT INFORMATION
  Report Type: 
  Country: None (occurrence: None)
  Receive Date: 20110701
  Receipt Date: 20110629
  Transmission Date: 20111222
  Serious: Yes (Hospitalization)
  Sender: FDA-Public Use
  Company Number: SE-MERCK-1106SWE00051

PATIENT
  Age: 79 Year
  Sex: Female

DRUGS (5)
  1. SIMVASTATIN [Concomitant]
     Route: 065
  2. METHOTREXATE SODIUM [Concomitant]
     Dosage: 50MG/ML
     Route: 051
  3. METOPROLOL SUCCINATE [Concomitant]
     Route: 048
  4. FOSAMAX [Suspect]
     Indication: OSTEOPOROSIS
     Route: 048
     Dates: start: 20060101
  5. CYANOCOBALAMIN [Concomitant]
     Route: 048

REACTIONS (1)
  - OSTEONECROSIS [None]
